FAERS Safety Report 6383625-6 (Version None)
Quarter: 2009Q3

REPORT INFORMATION
  Report Type: 
  Country: None (occurrence: None)
  Receive Date: 20090929
  Receipt Date: 20090929
  Transmission Date: 20100115
  Serious: Yes (Death)
  Sender: FDA-Public Use
  Company Number: None

PATIENT
  Sex: Male

DRUGS (9)
  1. REVLIMID [Suspect]
     Indication: MULTIPLE MYELOMA
     Dosage: REVLIMID 10MG DAILY 21D/28D ORALLY
     Route: 048
  2. LISINOPRIL [Concomitant]
  3. LOVASTATIN [Concomitant]
  4. PROTONIX [Concomitant]
  5. LYRICA [Concomitant]
  6. VICODIN [Concomitant]
  7. CYTOXAN [Concomitant]
  8. DEXAMETHASONE 0.5MG TAB [Concomitant]
  9. FLUOXETINE [Concomitant]

REACTIONS (1)
  - DEATH [None]
